FAERS Safety Report 4554414-X (Version None)
Quarter: 2005Q1

REPORT INFORMATION
  Report Type: 
  Country: None (occurrence: None)
  Receive Date: 20050118
  Receipt Date: 20050112
  Transmission Date: 20050727
  Serious: Yes (Death, Hospitalization)
  Sender: FDA-Public Use
  Company Number: 200510063EU

PATIENT
  Age: 75 Year
  Sex: Female

DRUGS (6)
  1. ENOXAPARIN SODIUM [Suspect]
     Route: 058
     Dates: start: 20040617, end: 20040707
  2. PROPOFOL [Concomitant]
     Route: 042
     Dates: start: 20040630, end: 20040712
  3. LOSEC [Concomitant]
     Route: 042
     Dates: start: 20040601, end: 20040712
  4. AUGMENTINE [Concomitant]
     Route: 042
     Dates: start: 20040627, end: 20040705
  5. GENTA-GOBENS [Concomitant]
     Route: 042
     Dates: start: 20040627, end: 20040703
  6. KONAKION [Concomitant]
     Route: 042
     Dates: start: 20040621, end: 20040703

REACTIONS (2)
  - IMMUNE SYSTEM DISORDER [None]
  - THROMBOCYTOPENIA [None]
